FAERS Safety Report 14555335 (Version 1)
Quarter: 2018Q1

REPORT INFORMATION
  Report Type: Spontaneous
  Country: US (occurrence: US)
  Receive Date: 20180220
  Receipt Date: 20180220
  Transmission Date: 20180509
  Serious: No
  Sender: FDA-Public Use
  Company Number: US-IPSEN BIOPHARMACEUTICALS, INC.-2017-07668

PATIENT
  Age: 56 Year
  Sex: Female

DRUGS (1)
  1. DYSPORT [Suspect]
     Active Substance: ABOBOTULINUMTOXINA
     Indication: SKIN WRINKLING
     Dosage: 75 UNITS
     Route: 058
     Dates: start: 20170612, end: 20170612

REACTIONS (4)
  - Drug ineffective [Unknown]
  - Incorrect route of drug administration [Unknown]
  - Overdose [Unknown]
  - Product storage error [Unknown]
